FAERS Safety Report 9234044 (Version 1)
Quarter: 2013Q1

REPORT INFORMATION
  Report Type: Spontaneous
  Country: US (occurrence: None)
  Receive Date: 20121031
  Receipt Date: 20121031
  Transmission Date: 20140127
  Serious: No
  Sender: FDA-Public Use
  Company Number: PHEH2012US012820

PATIENT
  Age: 55 Year
  Sex: Female
  Weight: 67.6 kg

DRUGS (3)
  1. GILENYA [Suspect]
     Route: 048
     Dates: start: 20120625, end: 20120625
  2. PROVIGIL (MODAFINIL) [Concomitant]
  3. VICODIN (HYDROCODONE BITARTRATE, PARACETAMOL) [Concomitant]

REACTIONS (4)
  - Metamorphopsia [None]
  - Blood pressure decreased [None]
  - Dizziness [None]
  - Heart rate decreased [None]
